FAERS Safety Report 8856913 (Version 1)
Quarter: 2012Q4

REPORT INFORMATION
  Report Type: Spontaneous
  Country: IE (occurrence: None)
  Receive Date: 20121023
  Receipt Date: 20121023
  Transmission Date: 20130627
  Serious: No
  Sender: FDA-Public Use
  Company Number: None

PATIENT
  Sex: Male
  Weight: 90.72 kg

DRUGS (1)
  1. LARIAM [Suspect]
     Indication: MALARIA
     Dosage: 36 to 40 tabs weekly po
     Dates: start: 20031001, end: 20040601

REACTIONS (12)
  - Aggression [None]
  - Social avoidant behaviour [None]
  - Depression [None]
  - Bedridden [None]
  - Asthenia [None]
  - Suicidal ideation [None]
  - Anxiety [None]
  - Nausea [None]
  - Arthralgia [None]
  - Spinal disorder [None]
  - Mass [None]
  - Feeling abnormal [None]
